FAERS Safety Report 10662379 (Version 1)
Quarter: 2014Q4

REPORT INFORMATION
  Report Type: Spontaneous
  Country: US (occurrence: None)
  Receive Date: 20141217
  Receipt Date: 20141217
  Transmission Date: 20150529
  Serious: Yes (Life-Threatening, Disabling, Other)
  Sender: FDA-Public Use
  Company Number: None

PATIENT
  Age: 26 Year
  Sex: Female
  Weight: 56.7 kg

DRUGS (1)
  1. HALDOL [Suspect]
     Active Substance: HALOPERIDOL
     Indication: AGITATION
     Dosage: 1 PILL TWICE DAILY TAKEN BY MOUTH
     Route: 048
     Dates: start: 20141211, end: 20141216

REACTIONS (11)
  - Lethargy [None]
  - Agitation [None]
  - Circadian rhythm sleep disorder [None]
  - Gait disturbance [None]
  - Thought blocking [None]
  - Somnolence [None]
  - Speech disorder [None]
  - Pain [None]
  - Nausea [None]
  - Language disorder [None]
  - Insomnia [None]

NARRATIVE: CASE EVENT DATE: 20141213
